FAERS Safety Report 6871989-6 (Version None)
Quarter: 2010Q3

REPORT INFORMATION
  Report Type: 
  Country: None (occurrence: None)
  Receive Date: 20100723
  Receipt Date: 20100715
  Transmission Date: 20110219
  Serious: Yes (Other)
  Sender: FDA-Public Use
  Company Number: US-PFIZER INC-2010089599

PATIENT
  Sex: Female
  Weight: 93 kg

DRUGS (3)
  1. LIPITOR [Suspect]
     Indication: BLOOD CHOLESTEROL INCREASED
     Dosage: 10 MG, 1X/DAY
     Route: 048
     Dates: end: 20100401
  2. HYDROCHLOROTHIAZIDE [Suspect]
     Indication: OEDEMA PERIPHERAL
     Dosage: UNK
  3. LOTREL [Suspect]
     Indication: HYPERTENSION
     Dosage: UNK
     Dates: end: 20100401

REACTIONS (4)
  - MUSCLE ATROPHY [None]
  - MUSCULAR WEAKNESS [None]
  - MYALGIA [None]
  - OEDEMA PERIPHERAL [None]
